FAERS Safety Report 5209497-0 (Version None)
Quarter: 2007Q1

REPORT INFORMATION
  Report Type: 
  Country: None (occurrence: None)
  Receive Date: 20070111
  Receipt Date: 20061228
  Transmission Date: 20070707
  Serious: Yes (Death)
  Sender: FDA-Public Use
  Company Number: 2006-06378

PATIENT
  Age: 38 Year
  Sex: Female

DRUGS (6)
  1. FLUOROURACIL [Suspect]
     Indication: BREAST CANCER
     Dosage: 840 MG/M2, Q 2 WEEKS X4
  2. CYCLOPHOSPHAMIDE [Suspect]
     Indication: BREAST CANCER
     Dosage: 840 MG/M2, Q 2 WEEKS X 4
  3. METHOTREXATE [Suspect]
     Indication: BREAST CANCER
     Dosage: 80 MG/M2, Q 2 WEEKS X 4
  4. EPIRUBICIN [Suspect]
     Indication: BREAST CANCER
     Dosage: 110 MG/M2 X 4 CYCLES
  5. GRANULOCYTE COLONY [Suspect]
     Indication: PROPHYLACTIC CHEMOTHERAPY
     Dosage: DAYS 3 -12
  6. TRIPTORELIN [Concomitant]

REACTIONS (2)
  - ACUTE MYELOID LEUKAEMIA [None]
  - T-CELL TYPE ACUTE LEUKAEMIA [None]
